FAERS Safety Report 21891328 (Version 1)
Quarter: 2023Q1

REPORT INFORMATION
  Report Type: Spontaneous
  Country: US (occurrence: US)
  Receive Date: 20230120
  Receipt Date: 20230120
  Transmission Date: 20230418
  Serious: Yes (Death)
  Sender: FDA-Public Use
  Company Number: US-APOTEX-2023AP000183

PATIENT
  Age: 43 Year
  Sex: Male

DRUGS (10)
  1. ALPRAZOLAM [Suspect]
     Active Substance: ALPRAZOLAM
     Indication: Product used for unknown indication
     Dosage: UNK
     Route: 048
  2. ALPRAZOLAM [Suspect]
     Active Substance: ALPRAZOLAM
     Dosage: UNK (ASPIRATION)
     Route: 050
  3. ALCOHOL [Suspect]
     Active Substance: ALCOHOL
     Indication: Product used for unknown indication
     Dosage: UNK
     Route: 048
  4. ALCOHOL [Suspect]
     Active Substance: ALCOHOL
     Dosage: UNK (ASPIRATION)
     Route: 050
  5. FLUOXETINE [Suspect]
     Active Substance: FLUOXETINE HYDROCHLORIDE
     Indication: Product used for unknown indication
     Dosage: UNK
     Route: 048
  6. FLUOXETINE [Suspect]
     Active Substance: FLUOXETINE HYDROCHLORIDE
     Dosage: UNK (ASPIRATION)
     Route: 050
  7. KETAMINE [Suspect]
     Active Substance: KETAMINE
     Indication: Product used for unknown indication
     Dosage: UNK
     Route: 048
  8. KETAMINE [Suspect]
     Active Substance: KETAMINE
     Dosage: UNK (ASPIRATION)
     Route: 050
  9. LISDEXAMFETAMINE [Suspect]
     Active Substance: LISDEXAMFETAMINE
     Indication: Product used for unknown indication
     Dosage: UNK
     Route: 048
  10. LISDEXAMFETAMINE [Suspect]
     Active Substance: LISDEXAMFETAMINE
     Dosage: UNK (ASPIRATION)
     Route: 050

REACTIONS (1)
  - Drug withdrawal syndrome [Fatal]
